FAERS Safety Report 24078938 (Version 2)
Quarter: 2024Q3

REPORT INFORMATION
  Report Type: Report from Study
  Country: US (occurrence: US)
  Receive Date: 20240711
  Receipt Date: 20240720
  Transmission Date: 20241017
  Serious: Yes (Other)
  Sender: JAZZ
  Company Number: US-JAZZ PHARMACEUTICALS-2024-US-010455

PATIENT
  Age: 15 Year
  Sex: Male
  Weight: 27.4 kg

DRUGS (1)
  1. EPIDIOLEX [Suspect]
     Active Substance: CANNABIDIOL
     Indication: Lennox-Gastaut syndrome
     Dosage: 3 MILLILITER AM, 4 MILLILITER PM; DAILY
     Route: 048

REACTIONS (1)
  - Seizure [Unknown]

NARRATIVE: CASE EVENT DATE: 20240701
